FAERS Safety Report 5485280-6 (Version None)
Quarter: 2007Q4

REPORT INFORMATION
  Report Type: 
  Country: None (occurrence: None)
  Receive Date: 20071015
  Receipt Date: 20071008
  Transmission Date: 20080405
  Serious: Yes (Other)
  Sender: FDA-Public Use
  Company Number: US-AVENTIS-200717097US

PATIENT
  Sex: Female

DRUGS (4)
  1. LOVENOX [Suspect]
     Route: 051
     Dates: start: 20060301, end: 20060901
  2. LOVENOX [Suspect]
     Route: 051
     Dates: start: 20060901
  3. GLUCOPHAGE [Concomitant]
     Dosage: DOSE: UNK
  4. HYDROCODONE [Concomitant]
     Dosage: DOSE: UNK

REACTIONS (6)
  - ABORTION SPONTANEOUS [None]
  - BLEEDING TIME PROLONGED [None]
  - COAGULOPATHY [None]
  - DRUG EXPOSURE DURING PREGNANCY [None]
  - DRUG INEFFECTIVE [None]
  - DYSGEUSIA [None]
